FAERS Safety Report 20343998 (Version 1)
Quarter: 2022Q1

REPORT INFORMATION
  Report Type: Report from Study
  Country: LT (occurrence: LT)
  Receive Date: 20220118
  Receipt Date: 20220118
  Transmission Date: 20220423
  Serious: Yes (Other)
  Sender: FDA-Public Use
  Company Number: LT-002147023-NVSC2020LT350037

PATIENT
  Age: 69 Year
  Sex: Female

DRUGS (6)
  1. RIVAROXABAN [Suspect]
     Active Substance: RIVAROXABAN
     Indication: Product used for unknown indication
     Dosage: 20 MG, QD
     Route: 048
     Dates: start: 20200302
  2. DAUNORUBICIN [Suspect]
     Active Substance: DAUNORUBICIN
     Indication: Product used for unknown indication
     Dosage: 360 MG, UNK
     Route: 065
     Dates: start: 20200306, end: 20200313
  3. NADROPARIN [Suspect]
     Active Substance: NADROPARIN
     Indication: Product used for unknown indication
     Route: 065
  4. CYTARABINE [Suspect]
     Active Substance: CYTARABINE
     Indication: Product used for unknown indication
     Dosage: 2800 MG
     Route: 065
     Dates: start: 20200306, end: 20200313
  5. CYTARABINE [Suspect]
     Active Substance: CYTARABINE
     Dosage: 2400 MG, UNK
     Route: 065
     Dates: start: 20200417, end: 20200422
  6. MIDOSTAURIN [Suspect]
     Active Substance: MIDOSTAURIN
     Indication: Product used for unknown indication
     Dosage: 400 MG, UNK
     Route: 065
     Dates: start: 20200417, end: 20200422

REACTIONS (6)
  - Left ventricular failure [Unknown]
  - Dyspnoea [Unknown]
  - Lung disorder [Unknown]
  - Fatigue [Recovered/Resolved]
  - Ejection fraction decreased [Recovered/Resolved]
  - Oedema peripheral [Unknown]

NARRATIVE: CASE EVENT DATE: 20200501
